FAERS Safety Report 7554794-7 (Version None)
Quarter: 2011Q2

REPORT INFORMATION
  Report Type: 
  Country: None (occurrence: None)
  Receive Date: 20110617
  Receipt Date: 20110615
  Transmission Date: 20111010
  Serious: Yes (Death, Hospitalization)
  Sender: FDA-Public Use
  Company Number: BR-BRISTOL-MYERS SQUIBB COMPANY-15244866

PATIENT
  Age: 76 Year
  Sex: Male

DRUGS (8)
  1. ONDANSETRON [Concomitant]
     Indication: NAUSEA
     Dates: start: 20100505, end: 20100509
  2. PACLITAXEL [Suspect]
     Indication: NON-SMALL CELL LUNG CANCER
     Route: 042
     Dates: start: 20100505, end: 20100505
  3. CAPTOPRIL [Concomitant]
     Indication: HYPERTENSION
     Dates: start: 20060101, end: 20100419
  4. DEXAMETHASONE [Concomitant]
     Indication: NAUSEA
     Dates: start: 20100505, end: 20100509
  5. FLUOXETINE HYDROCHLORIDE [Concomitant]
     Indication: DEPRESSION
     Dates: start: 20100125, end: 20100513
  6. CIPROFLOXACIN HCL [Concomitant]
     Indication: URINARY TRACT INFECTION
     Dates: start: 20100427, end: 20100504
  7. DEXAMETHASONE [Concomitant]
     Indication: MYALGIA
     Dates: start: 20100505, end: 20100509
  8. CARBOPLATIN [Suspect]
     Indication: NON-SMALL CELL LUNG CANCER
     Route: 042
     Dates: start: 20100505, end: 20100505

REACTIONS (2)
  - RENAL FAILURE [None]
  - ACUTE PULMONARY OEDEMA [None]
